FAERS Safety Report 16047138 (Version 1)
Quarter: 2019Q1

REPORT INFORMATION
  Report Type: Spontaneous
  Country: GR (occurrence: GR)
  Receive Date: 20190307
  Receipt Date: 20190307
  Transmission Date: 20190418
  Serious: Yes (Hospitalization)
  Sender: FDA-Public Use
  Company Number: GR-MYLANLABS-2019M1021294

PATIENT
  Age: 72 Year
  Sex: Female

DRUGS (1)
  1. CIPROFLOXACIN/GENERICS [Suspect]
     Active Substance: CIPROFLOXACIN
     Indication: SOFT TISSUE INFECTION
     Dosage: UNK

REACTIONS (3)
  - Genital burning sensation [Unknown]
  - Pyrexia [Unknown]
  - Drug ineffective [Unknown]
